FAERS Safety Report 11225569 (Version 2)
Quarter: 2016Q1

REPORT INFORMATION
  Report Type: Spontaneous
  Country: NL (occurrence: NL)
  Receive Date: 20150629
  Receipt Date: 20160119
  Transmission Date: 20160525
  Serious: Yes (Life-Threatening, Other)
  Sender: FDA-Public Use
  Company Number: NL-GLAXOSMITHKLINE-NL2015GSK091885

PATIENT
  Age: 16 Year
  Sex: Female
  Weight: 55 kg

DRUGS (7)
  1. HYDROCORTISONE. [Suspect]
     Active Substance: HYDROCORTISONE
     Indication: ECZEMA
     Dosage: UNK UNK, UNK
     Route: 003
     Dates: start: 20071116, end: 20150123
  2. NALCROM [Concomitant]
     Dosage: 20 UNK, Z
  3. NALCROM DRINK [Concomitant]
     Dosage: 20 UNK, Z
  4. DERMOVATE [Suspect]
     Active Substance: CLOBETASOL
     Indication: ECZEMA
     Dosage: 0.05 %, UNK
     Route: 003
     Dates: start: 20071116, end: 20150123
  5. CUTIVATE [Suspect]
     Active Substance: FLUTICASONE PROPIONATE
     Indication: ECZEMA
     Dosage: 0.05 UNK, UNK
     Route: 003
     Dates: start: 20071116, end: 20150123
  6. TAVEGYL [Concomitant]
     Active Substance: CLEMASTINE FUMARATE
     Dosage: 1 MG, Z
  7. HYDROXYZINE [Concomitant]
     Active Substance: HYDROXYZINE\HYDROXYZINE HYDROCHLORIDE
     Dosage: 25 MG, Z

REACTIONS (10)
  - Food allergy [Recovering/Resolving]
  - Fatigue [Recovering/Resolving]
  - Condition aggravated [Recovering/Resolving]
  - Eye disorder [Recovering/Resolving]
  - Erythema [Recovering/Resolving]
  - Pruritus [Recovering/Resolving]
  - Decreased immune responsiveness [Recovering/Resolving]
  - Depressed mood [Recovered/Resolved with Sequelae]
  - Drug abuse [Recovered/Resolved]
  - Suicidal ideation [Recovered/Resolved with Sequelae]

NARRATIVE: CASE EVENT DATE: 20071201
